FAERS Safety Report 6388944-5 (Version None)
Quarter: 2009Q4

REPORT INFORMATION
  Report Type: 
  Country: None (occurrence: None)
  Receive Date: 20091001
  Receipt Date: 20090922
  Transmission Date: 20100525
  Serious: Yes (Other)
  Sender: FDA-Public Use
  Company Number: ADR29512009

PATIENT
  Age: 20 Year
  Sex: Male

DRUGS (2)
  1. RAMIPRIL [Suspect]
     Indication: NEPHROPATHY
     Dosage: ORAL
     Route: 048
     Dates: start: 20070711, end: 20080816
  2. AMLODIPINE [Concomitant]

REACTIONS (3)
  - DEPRESSION [None]
  - PROTEIN URINE PRESENT [None]
  - SELF-INJURIOUS IDEATION [None]
